FAERS Safety Report 25496131 (Version 1)
Quarter: 2025Q2

REPORT INFORMATION
  Report Type: Spontaneous
  Country: US (occurrence: US)
  Receive Date: 20250630
  Receipt Date: 20250630
  Transmission Date: 20250716
  Serious: No
  Sender: CALLIDITAS THERAPEUTICS AB
  Company Number: US-Calliditas-2025CAL01544

PATIENT
  Age: 74 Year
  Sex: Female

DRUGS (7)
  1. TARPEYO [Suspect]
     Active Substance: BUDESONIDE
     Indication: IgA nephropathy
     Route: 048
     Dates: start: 20250514, end: 202506
  2. CARVEDILOL [Concomitant]
     Active Substance: CARVEDILOL
  3. ATORVASTATIN [Concomitant]
     Active Substance: ATORVASTATIN
  4. DULOXETINE [Concomitant]
     Active Substance: DULOXETINE
  5. LOSARTAN [Concomitant]
     Active Substance: LOSARTAN
  6. CYLTEZO [ADALIMUMAB] [Concomitant]
  7. CIPROFLOXACIN [Concomitant]
     Active Substance: CIPROFLOXACIN

REACTIONS (8)
  - Urinary tract infection [Recovering/Resolving]
  - Dry throat [Unknown]
  - Vaginal infection [Recovering/Resolving]
  - Increased appetite [Unknown]
  - Nervousness [Unknown]
  - Dyskinesia [Unknown]
  - Tremor [Not Recovered/Not Resolved]
  - Urinary incontinence [Not Recovered/Not Resolved]
